FAERS Safety Report 14262592 (Version 3)
Quarter: 2018Q1

REPORT INFORMATION
  Report Type: Spontaneous
  Country: US (occurrence: US)
  Receive Date: 20171208
  Receipt Date: 20180308
  Transmission Date: 20180508
  Serious: Yes (Other)
  Sender: FDA-Public Use
  Company Number: US-JNJFOC-20171200073

PATIENT
  Age: 86 Year
  Sex: Male

DRUGS (2)
  1. VANTAS [Concomitant]
     Active Substance: HISTRELIN ACETATE
     Route: 065
  2. ZYTIGA [Suspect]
     Active Substance: ABIRATERONE ACETATE
     Indication: PROSTATE CANCER
     Route: 048
     Dates: end: 20180112

REACTIONS (6)
  - Blood alkaline phosphatase increased [Unknown]
  - Renal cancer [Unknown]
  - Bone cancer [Unknown]
  - Prostate cancer [Unknown]
  - Alanine aminotransferase increased [Unknown]
  - Aspartate aminotransferase increased [Unknown]

NARRATIVE: CASE EVENT DATE: 20171227
